FAERS Safety Report 16291599 (Version 1)
Quarter: 2019Q2

REPORT INFORMATION
  Report Type: Spontaneous
  Country: US (occurrence: US)
  Receive Date: 20190404
  Receipt Date: 20190404
  Transmission Date: 20190711
  Serious: Yes (Other)
  Sender: FDA-Public Use
  Company Number: None

PATIENT
  Age: 86 Year
  Sex: Female
  Weight: 82.55 kg

DRUGS (21)
  1. VITAMIN D3 [Concomitant]
     Active Substance: CHOLECALCIFEROL
  2. FISH OIL [Concomitant]
     Active Substance: FISH OIL
  3. FLONASE [Concomitant]
     Active Substance: FLUTICASONE PROPIONATE
  4. DOTAREM [Suspect]
     Active Substance: GADOTERATE MEGLUMINE
     Indication: TRANSIENT ISCHAEMIC ATTACK
     Dosage: ONCE BEFORE MRI INTO THE SKIN INTO LINE IN THE ARM
     Dates: start: 20180213
  5. ZETIA [Concomitant]
     Active Substance: EZETIMIBE
  6. DOTAREM [Suspect]
     Active Substance: GADOTERATE MEGLUMINE
     Indication: NUCLEAR MAGNETIC RESONANCE IMAGING BRAIN
     Dosage: ONCE BEFORE MRI INTO THE SKIN INTO LINE IN THE ARM
     Dates: start: 20180213
  7. TYLENOL [Concomitant]
     Active Substance: ACETAMINOPHEN
  8. LEVOTHYROXINE. [Concomitant]
     Active Substance: LEVOTHYROXINE
  9. METOPROLOL TARTA [Concomitant]
  10. ERYTHROMYCIN. [Concomitant]
     Active Substance: ERYTHROMYCIN
  11. GLIPIZIDE. [Concomitant]
     Active Substance: GLIPIZIDE
  12. VITAMIN B12 [Concomitant]
     Active Substance: CYANOCOBALAMIN
  13. NYSTATIN-TRIAMCINOLONE [Concomitant]
  14. CALCIUM [Concomitant]
     Active Substance: CALCIUM
  15. CENTRUM SILVER [Concomitant]
     Active Substance: MINERALS\VITAMINS
  16. RED YEAST RICE [Concomitant]
     Active Substance: DIETARY SUPPLEMENT
  17. ROGAN FOR HAIR [Concomitant]
  18. HAIR, SKIN, ARGAN OIL [Concomitant]
  19. LISINOPRIL. [Concomitant]
     Active Substance: LISINOPRIL
  20. ASPIRIN. [Concomitant]
     Active Substance: ASPIRIN
  21. EZENTIMIBE [Concomitant]

REACTIONS (3)
  - Rash generalised [None]
  - Contrast media allergy [None]
  - Product use issue [None]

NARRATIVE: CASE EVENT DATE: 20181213
